FAERS Safety Report 17165585 (Version 1)
Quarter: 2019Q4

REPORT INFORMATION
  Report Type: Spontaneous
  Country: US (occurrence: US)
  Receive Date: 20191217
  Receipt Date: 20191217
  Transmission Date: 20200122
  Serious: No
  Sender: FDA-Public Use
  Company Number: US-ASTRAZENECA-2019SF67494

PATIENT
  Age: 23332 Day
  Sex: Male

DRUGS (14)
  1. BYDUREON BCISE [Suspect]
     Active Substance: EXENATIDE
     Indication: DIABETES MELLITUS
     Route: 058
  2. NITOGLYCERIN [Concomitant]
  3. HUMIRA [Concomitant]
     Active Substance: ADALIMUMAB
  4. PROTONIX [Concomitant]
     Active Substance: PANTOPRAZOLE SODIUM
  5. TUJEO [Concomitant]
     Indication: DIABETES MELLITUS
  6. FENOFIBRATE. [Concomitant]
     Active Substance: FENOFIBRATE
  7. NAPROXEN. [Concomitant]
     Active Substance: NAPROXEN
  8. VALSARTEN [Concomitant]
     Active Substance: VALSARTAN
  9. JARDIANCE [Concomitant]
     Active Substance: EMPAGLIFLOZIN
     Indication: DIABETES MELLITUS
  10. METFORMIN [Concomitant]
     Active Substance: METFORMIN HYDROCHLORIDE
     Indication: DIABETES MELLITUS
  11. XARELTO [Concomitant]
     Active Substance: RIVAROXABAN
  12. CARDIZEM [Concomitant]
     Active Substance: DILTIAZEM HYDROCHLORIDE
  13. ATORVASTATIN [Concomitant]
     Active Substance: ATORVASTATIN
  14. SOTALOL. [Concomitant]
     Active Substance: SOTALOL

REACTIONS (4)
  - Injection site haemorrhage [Unknown]
  - Intentional product misuse [Unknown]
  - Underdose [Unknown]
  - Device leakage [Unknown]

NARRATIVE: CASE EVENT DATE: 20191117
